FAERS Safety Report 6491915-1 (Version None)
Quarter: 2009Q4

REPORT INFORMATION
  Report Type: 
  Country: None (occurrence: None)
  Receive Date: 20091125
  Receipt Date: 20090922
  Transmission Date: 20100525
  Serious: Yes (Hospitalization)
  Sender: FDA-Public Use
  Company Number: 2009BH013276

PATIENT
  Age: 17 Year
  Sex: Male

DRUGS (6)
  1. DIANEAL [Suspect]
     Indication: PERITONEAL DIALYSIS
     Dosage: ; EVERY PM ; IP
     Route: 033
     Dates: start: 20081001, end: 20090828
  2. DIANEAL [Suspect]
     Indication: PERITONEAL DIALYSIS
     Dosage: 1.5 L ; EVERY DAY ; IP
     Route: 033
     Dates: start: 20081001, end: 20090828
  3. RENAGEL [Concomitant]
  4. EPOGEN [Concomitant]
  5. PROCARDIA [Concomitant]
  6. FERROUS SULFATE TAB [Concomitant]

REACTIONS (1)
  - HYPERTENSION [None]
